FAERS Safety Report 14844478 (Version 3)
Quarter: 2018Q4

REPORT INFORMATION
  Report Type: Report from Study
  Country: JP (occurrence: JP)
  Receive Date: 20180503
  Receipt Date: 20181024
  Transmission Date: 20190204
  Serious: Yes (Hospitalization, Other)
  Sender: FDA-Public Use
  Company Number: JP-009507513-1804JPN003096J

PATIENT
  Age: 90 Year
  Sex: Male
  Weight: 44 kg

DRUGS (7)
  1. CAMOSTAT MESYLATE [Concomitant]
     Active Substance: CAMOSTAT MESYLATE
     Indication: PANCREATITIS CHRONIC
     Dosage: 200 MG, TID
     Route: 048
     Dates: start: 20180427
  2. NEXIUM [Concomitant]
     Active Substance: ESOMEPRAZOLE MAGNESIUM
     Indication: GASTROOESOPHAGEAL REFLUX DISEASE
     Dosage: 20 MG, QD
     Route: 048
     Dates: start: 20180414
  3. KEYTRUDA [Suspect]
     Active Substance: PEMBROLIZUMAB
     Indication: TRANSITIONAL CELL CARCINOMA
     Dosage: 200 MG, Q3W
     Route: 041
     Dates: start: 20180305, end: 20180416
  4. OXYBUTYNIN. [Concomitant]
     Active Substance: OXYBUTYNIN CHLORIDE
     Indication: POLLAKIURIA
     Dosage: 73.5 MG, QD
     Route: 065
     Dates: start: 20170314
  5. ENSURE H [Concomitant]
     Indication: NUTRITIONAL CONDITION ABNORMAL
     Dosage: 250 ML, QD
     Route: 048
     Dates: start: 20170828
  6. PAXIL [Concomitant]
     Active Substance: PAROXETINE HYDROCHLORIDE
     Indication: DEPRESSION
     Dosage: 10 MG, QD
     Route: 048
     Dates: start: 20180317
  7. RHYTHMY [Concomitant]
     Active Substance: RILMAZAFONE HYDROCHLORIDE
     Indication: INSOMNIA
     Dosage: 1 MG, QD
     Route: 048
     Dates: start: 20180302

REACTIONS (1)
  - Retroperitoneal fibrosis [Unknown]

NARRATIVE: CASE EVENT DATE: 201804
